FAERS Safety Report 15737386 (Version 3)
Quarter: 2019Q1

REPORT INFORMATION
  Report Type: Spontaneous
  Country: US (occurrence: US)
  Receive Date: 20181218
  Receipt Date: 20190128
  Transmission Date: 20190417
  Serious: Yes (Hospitalization)
  Sender: FDA-Public Use
  Company Number: US-VERTEX PHARMACEUTICALS-2018-009544

PATIENT
  Age: 14 Year
  Sex: Male

DRUGS (14)
  1. BETHKIS [Suspect]
     Active Substance: TOBRAMYCIN
     Indication: CYSTIC FIBROSIS
     Dosage: 1 VIAL, BID
     Route: 048
     Dates: start: 20161201
  2. AZITHROMYCIN ANHYDROUS. [Concomitant]
     Active Substance: AZITHROMYCIN ANHYDROUS
  3. ALBUTEROL                          /00139501/ [Concomitant]
     Active Substance: ALBUTEROL
  4. CALCIPOTRIENE. [Concomitant]
     Active Substance: CALCIPOTRIENE
  5. FLUTICASONE. [Concomitant]
     Active Substance: FLUTICASONE
     Route: 045
  6. HUMULIN N [Concomitant]
     Active Substance: INSULIN HUMAN
  7. ORKAMBI [Suspect]
     Active Substance: IVACAFTOR\LUMACAFTOR
     Indication: CYSTIC FIBROSIS
     Dosage: 2 DOSAGE FORM (200/125 MG EACH), BID
     Route: 048
     Dates: start: 20160328
  8. CLOBETASOL [Concomitant]
     Active Substance: CLOBETASOL
  9. CREON [Concomitant]
     Active Substance: PANCRELIPASE AMYLASE\PANCRELIPASE LIPASE\PANCRELIPASE PROTEASE
  10. HUMALOG [Concomitant]
     Active Substance: INSULIN LISPRO
  11. PULMOZYME [Concomitant]
     Active Substance: DORNASE ALFA
  12. PHYTONADIONE. [Concomitant]
     Active Substance: PHYTONADIONE
  13. SODIUM CHLORIDE. [Concomitant]
     Active Substance: SODIUM CHLORIDE
  14. CETIRIZINE [Concomitant]
     Active Substance: CETIRIZINE HYDROCHLORIDE

REACTIONS (1)
  - Infective pulmonary exacerbation of cystic fibrosis [Recovered/Resolved]

NARRATIVE: CASE EVENT DATE: 201811
